FAERS Safety Report 9125678 (Version 1)
Quarter: 2013Q1

REPORT INFORMATION
  Report Type: Spontaneous
  Country: ES (occurrence: ES)
  Receive Date: 20130228
  Receipt Date: 20130228
  Transmission Date: 20140127
  Serious: Yes (Death)
  Sender: FDA-Public Use
  Company Number: ES-009507513-1302ESP011755

PATIENT
  Age: 54 Year
  Sex: Male

DRUGS (6)
  1. VICTRELIS [Suspect]
     Indication: HEPATITIS C
     Dosage: 800 MG, TID
     Route: 048
     Dates: start: 20120712, end: 20120824
  2. REBETOL [Interacting]
     Indication: HEPATITIS C
     Dosage: 300 MG, BID
     Route: 048
     Dates: start: 20120712, end: 20120824
  3. PEGINTRON [Interacting]
     Indication: HEPATITIS C
     Dosage: 100 MICROGRAM, QW
     Route: 058
     Dates: start: 20120712, end: 20120824
  4. KIVEXA [Interacting]
     Indication: HIV INFECTION
     Dosage: 1 DF, QD
     Route: 048
     Dates: start: 201108, end: 20120824
  5. ISENTRESS [Interacting]
     Indication: HIV INFECTION
     Dosage: 400 MG, BID
     Route: 048
     Dates: start: 201108, end: 20120824
  6. CUBICIN [Interacting]
     Dosage: 500 MG, QD
     Route: 042
     Dates: start: 20120719, end: 20120824

REACTIONS (1)
  - Lactic acidosis [Fatal]
